FAERS Safety Report 14292744 (Version 1)
Quarter: 2017Q4

REPORT INFORMATION
  Report Type: Spontaneous
  Country: IT (occurrence: IT)
  Receive Date: 20171215
  Receipt Date: 20171215
  Transmission Date: 20180321
  Serious: Yes (Other)
  Sender: FDA-Public Use
  Company Number: IT-SA-2017SA235887

PATIENT
  Age: 80 Year
  Sex: Male

DRUGS (1)
  1. STILNOX [Suspect]
     Active Substance: ZOLPIDEM TARTRATE
     Indication: INSOMNIA
     Route: 048
     Dates: start: 20171020

REACTIONS (3)
  - Drug level increased [Unknown]
  - Road traffic accident [Unknown]
  - Spinal cord injury cervical [Unknown]

NARRATIVE: CASE EVENT DATE: 201710
